FAERS Safety Report 5397614-1 (Version None)
Quarter: 2007Q3

REPORT INFORMATION
  Report Type: 
  Country: None (occurrence: None)
  Receive Date: 20070723
  Receipt Date: 20070723
  Transmission Date: 20080115
  Serious: Yes (Life-Threatening, Hospitalization, Other)
  Sender: FDA-Public Use
  Company Number: None

PATIENT
  Age: 25 Year
  Sex: Male
  Weight: 124.7392 kg

DRUGS (1)
  1. LARIAM [Suspect]
     Indication: MALARIA PROPHYLAXIS
     Dosage: 1 TABLET ONCE A WEEK PO
     Route: 048
     Dates: start: 20050825, end: 20061118

REACTIONS (5)
  - EPILEPSY [None]
  - INFECTION [None]
  - PARTIAL SEIZURES [None]
  - SWOLLEN TONGUE [None]
  - TONGUE DISORDER [None]
